FAERS Safety Report 24324440 (Version 1)
Quarter: 2024Q3

REPORT INFORMATION
  Report Type: Spontaneous
  Country: CN (occurrence: CN)
  Receive Date: 20240916
  Receipt Date: 20240916
  Transmission Date: 20241016
  Serious: Yes (Other)
  Sender: BRACCO
  Company Number: CN-BRACCO-2024CN05699

PATIENT
  Age: 71 Year
  Sex: Male

DRUGS (1)
  1. GADOBENATE DIMEGLUMINE [Suspect]
     Active Substance: GADOBENATE DIMEGLUMINE
     Indication: Angiogram
     Dosage: 15 ML, SINGLE
     Route: 042
     Dates: start: 20240901, end: 20240901

REACTIONS (2)
  - Hypotension [Recovering/Resolving]
  - Hypersensitivity [Recovering/Resolving]

NARRATIVE: CASE EVENT DATE: 20240901
